FAERS Safety Report 12686655 (Version 2)
Quarter: 2016Q4

REPORT INFORMATION
  Report Type: Spontaneous
  Country: TR (occurrence: TR)
  Receive Date: 20160825
  Receipt Date: 20161011
  Transmission Date: 20170207
  Serious: Yes (Other)
  Sender: FDA-Public Use
  Company Number: TR-GE HEALTHCARE MEDICAL DIAGNOSTICS-OMPQ-PR-1608S-1524

PATIENT
  Age: 7 Month
  Sex: Female
  Weight: 4.3 kg

DRUGS (4)
  1. KETALAR [Concomitant]
     Active Substance: KETAMINE HYDROCHLORIDE
  2. OMNIPAQUE [Suspect]
     Active Substance: IOHEXOL
     Indication: HEART DISEASE CONGENITAL
     Dosage: DOSE NOT REPORTED
     Route: 013
     Dates: start: 20160801, end: 20160801
  3. DEMIZOLAM [Concomitant]
  4. OMNIPAQUE [Suspect]
     Active Substance: IOHEXOL
     Indication: DIAGNOSTIC PROCEDURE

REACTIONS (4)
  - Respiratory distress [Recovered/Resolved]
  - Erythema [Recovered/Resolved]
  - Swelling [Recovered/Resolved]
  - Pyrexia [Recovered/Resolved]

NARRATIVE: CASE EVENT DATE: 201608
